FAERS Safety Report 9519071 (Version 1)
Quarter: 2013Q1

REPORT INFORMATION
  Report Type: Spontaneous
  Country: US (occurrence: None)
  Receive Date: 20130305
  Receipt Date: 20130305
  Transmission Date: 20140127
  Serious: Yes (Other)
  Sender: FDA-Public Use
  Company Number: 163-21880-12040569

PATIENT
  Age: 71 Year
  Sex: Female
  Weight: 63.5 kg

DRUGS (4)
  1. REVLIMID (LENALIDOMIDE) (25 MILLIGRAM, CAPSULES) [Suspect]
     Indication: PLASMA CELL MYELOMA
     Dosage: 21 IN 28 D
     Route: 048
     Dates: start: 20120308
  2. DEXAMETHASONE (DEXAMETHASONE) (TABLETS) [Suspect]
     Indication: PRODUCT USED FOR UNKNOWN INDICATION
     Dosage: 10 IN 1 WK
     Route: 048
  3. POTASSIUM (POTASSIUM) [Concomitant]
  4. ZOMETA (ZOLEDRONIC ACID) [Concomitant]

REACTIONS (18)
  - Varicose vein [None]
  - Decreased appetite [None]
  - Migraine with aura [None]
  - Dysphonia [None]
  - Heart rate increased [None]
  - Fatigue [None]
  - Fatigue [None]
  - Pruritus [None]
  - Muscle spasms [None]
  - Hypertension [None]
  - Dry mouth [None]
  - Dry skin [None]
  - Diarrhoea [None]
  - Skin hyperpigmentation [None]
  - Micturition urgency [None]
  - Nasal congestion [None]
  - Dehydration [None]
  - Gastrooesophageal reflux disease [None]
